FAERS Safety Report 7426083-2 (Version None)
Quarter: 2011Q2

REPORT INFORMATION
  Report Type: 
  Country: None (occurrence: None)
  Receive Date: 20110420
  Receipt Date: 20110407
  Transmission Date: 20111010
  Serious: Yes (Hospitalization)
  Sender: FDA-Public Use
  Company Number: PHHY2011FR31450

PATIENT
  Sex: Male

DRUGS (2)
  1. LEPONEX [Suspect]
     Indication: SCHIZOPHRENIA
     Dosage: 25 MG, DAILY
     Dates: start: 20110221
  2. LEPONEX [Suspect]
     Dosage: 200 MG, DAILY
     Dates: start: 20110301

REACTIONS (10)
  - MYOCARDITIS [None]
  - SUPRAVENTRICULAR TACHYCARDIA [None]
  - TACHYCARDIA [None]
  - CHEST PAIN [None]
  - DYSPNOEA [None]
  - PYREXIA [None]
  - INFLAMMATION [None]
  - TROPONIN INCREASED [None]
  - BURNING SENSATION [None]
  - C-REACTIVE PROTEIN INCREASED [None]
